FAERS Safety Report 22825666 (Version 2)
Quarter: 2023Q4

REPORT INFORMATION
  Report Type: Spontaneous
  Country: AU (occurrence: AU)
  Receive Date: 20230816
  Receipt Date: 20231024
  Transmission Date: 20240110
  Serious: Yes (Hospitalization, Other)
  Sender: FDA-Public Use
  Company Number: AU-002147023-NVSC2023AU173202

PATIENT
  Sex: Female

DRUGS (2)
  1. XOLAIR [Suspect]
     Active Substance: OMALIZUMAB
     Indication: Urticaria
     Route: 065
  2. EPIPEN [Concomitant]
     Active Substance: EPINEPHRINE
     Indication: Product used for unknown indication
     Dosage: UNK

REACTIONS (12)
  - Haemoptysis [Unknown]
  - Respiratory tract infection [Unknown]
  - Arthralgia [Unknown]
  - Adrenocortical insufficiency acute [Unknown]
  - Pulmonary oedema [Unknown]
  - Choking [Unknown]
  - Shock [Unknown]
  - Photophobia [Unknown]
  - Cognitive disorder [Unknown]
  - Memory impairment [Unknown]
  - Speech disorder [Unknown]
  - Movement disorder [Unknown]
